FAERS Safety Report 7505495-2 (Version None)
Quarter: 2011Q2

REPORT INFORMATION
  Report Type: 
  Country: None (occurrence: None)
  Receive Date: 20110518
  Receipt Date: 20110503
  Transmission Date: 20111010
  Serious: Yes (Hospitalization)
  Sender: FDA-Public Use
  Company Number: B0718908A

PATIENT
  Age: 27 Year
  Sex: Female

DRUGS (4)
  1. EPZICOM [Suspect]
     Indication: HIV INFECTION
     Dates: start: 20070801
  2. LOPINAVIR (FORMULATION UNKNOWN) LOPINAVIR) [Suspect]
  3. RITONAVIR [Suspect]
     Indication: HIV INFECTION
  4. INSULIN [Concomitant]

REACTIONS (5)
  - INSULIN RESISTANCE SYNDROME [None]
  - TUBERCULOSIS [None]
  - HYPOGLYCAEMIA [None]
  - TREATMENT FAILURE [None]
  - IMMUNE RECONSTITUTION SYNDROME [None]
